FAERS Safety Report 5501740-3 (Version None)
Quarter: 2007Q4

REPORT INFORMATION
  Report Type: 
  Country: None (occurrence: None)
  Receive Date: 20071030
  Receipt Date: 20071022
  Transmission Date: 20080405
  Serious: Yes (Other)
  Sender: FDA-Public Use
  Company Number: US-JNJFOC-20071006113

PATIENT
  Sex: Male
  Weight: 72.58 kg

DRUGS (6)
  1. FENTANYL TRANSDERMAL SYSTEM [Suspect]
     Indication: PAIN
     Route: 062
  2. HYDROCODONE BITARTRATE [Concomitant]
     Indication: PAIN
     Route: 048
  3. FLOMAX [Concomitant]
     Indication: URINARY TRACT DISORDER
     Route: 048
  4. METOPROLOL [Concomitant]
     Indication: BLOOD PRESSURE
     Route: 048
  5. SIMVASTATIN [Concomitant]
     Indication: BLOOD CHOLESTEROL
     Route: 048
  6. ASPIRIN [Concomitant]
     Indication: CARDIAC DISORDER
     Route: 048

REACTIONS (3)
  - APPLICATION SITE ERYTHEMA [None]
  - SHOULDER OPERATION [None]
  - THERAPY CESSATION [None]
